FAERS Safety Report 10890409 (Version 1)
Quarter: 2015Q1

REPORT INFORMATION
  Report Type: Spontaneous
  Country: US (occurrence: US)
  Receive Date: 20150305
  Receipt Date: 20150305
  Transmission Date: 20150721
  Serious: Yes (Hospitalization)
  Sender: FDA-Public Use
  Company Number: US-SA-2015SA026161

PATIENT
  Age: 41 Year
  Sex: Male
  Weight: 59.1 kg

DRUGS (18)
  1. FABRAZYME [Suspect]
     Active Substance: AGALSIDASE BETA
     Indication: FABRY^S DISEASE
     Route: 042
     Dates: start: 20140918
  2. HEPARIN [Concomitant]
     Active Substance: HEPARIN SODIUM
  3. WATER. [Concomitant]
     Active Substance: WATER
  4. LISINOPRIL. [Concomitant]
     Active Substance: LISINOPRIL
  5. PROGRAF [Concomitant]
     Active Substance: TACROLIMUS\TACROLIMUS ANHYDROUS
  6. CELLCEPT [Concomitant]
     Active Substance: MYCOPHENOLATE MOFETIL\MYCOPHENOLATE MOFETIL HYDROCHLORIDE
  7. PREDNISONE. [Concomitant]
     Active Substance: PREDNISONE
  8. LIPITOR [Concomitant]
     Active Substance: ATORVASTATIN CALCIUM
  9. METHYLPREDNISOLONE. [Concomitant]
     Active Substance: METHYLPREDNISOLONE
  10. SODIUM CHLORIDE. [Concomitant]
     Active Substance: SODIUM CHLORIDE
  11. CALCITRIOL. [Concomitant]
     Active Substance: CALCITRIOL
  12. METOPROLOL [Concomitant]
     Active Substance: METOPROLOL
  13. ADVAIR HFA [Concomitant]
     Active Substance: FLUTICASONE PROPIONATE\SALMETEROL XINAFOATE
  14. DIPHENHYDRAMINE [Concomitant]
     Active Substance: DIPHENHYDRAMINE
  15. NORMAL SALINE [Concomitant]
     Active Substance: SODIUM CHLORIDE
  16. EPIPEN [Concomitant]
     Active Substance: EPINEPHRINE
  17. OMEPRAZOLE. [Concomitant]
     Active Substance: OMEPRAZOLE
  18. FABRAZYME [Suspect]
     Active Substance: AGALSIDASE BETA
     Indication: FABRY^S DISEASE
     Route: 042
     Dates: start: 20140918

REACTIONS (1)
  - Pneumonia [Not Recovered/Not Resolved]

NARRATIVE: CASE EVENT DATE: 20150217
